FAERS Safety Report 5190428-7 (Version None)
Quarter: 2006Q4

REPORT INFORMATION
  Report Type: 
  Country: None (occurrence: None)
  Receive Date: 20061222
  Receipt Date: 20060825
  Transmission Date: 20070319
  Serious: Yes (Other)
  Sender: FDA-Public Use
  Company Number: US-ELI_LILLY_AND_COMPANY-US200608005989

PATIENT
  Age: 51 Year
  Sex: Female
  Weight: 105.22 kg

DRUGS (11)
  1. CYMBALTA [Suspect]
     Indication: PAIN
     Dosage: 60 MG, UNK
     Dates: end: 20060725
  2. CYMBALTA [Suspect]
     Dosage: 30 MG, UNK
     Dates: start: 20060425
  3. COLCHICINE [Concomitant]
     Indication: GOUT
     Dosage: 0.6 MG, AS NEEDED
  4. SYNTHROID [Concomitant]
     Dosage: 1.25 MG, DAILY (1/D)
  5. DIOVAN HCT [Concomitant]
     Dosage: UNK, DAILY (1/D)
  6. NOVOLIN 70/30 [Concomitant]
     Dosage: UNK, DAILY (1/D)
  7. HUMALOG [Concomitant]
  8. NEXIUM [Concomitant]
     Dosage: 40 MG, DAILY (1/D)
  9. ENBREL [Concomitant]
     Dosage: UNK, WEEKLY (1/W)
  10. LASIX [Concomitant]
     Dosage: 40 MG, DAILY (1/D)
  11. DARVOCET-N 100 [Concomitant]

REACTIONS (2)
  - ALANINE AMINOTRANSFERASE INCREASED [None]
  - ASPARTATE AMINOTRANSFERASE INCREASED [None]
